FAERS Safety Report 6529499-1 (Version None)
Quarter: 2010Q1

REPORT INFORMATION
  Report Type: 
  Country: None (occurrence: None)
  Receive Date: 20100107
  Receipt Date: 20091222
  Transmission Date: 20100710
  Serious: Yes (Hospitalization)
  Sender: FDA-Public Use
  Company Number: PHHY2009JP55151

PATIENT
  Sex: Female

DRUGS (10)
  1. SALAGEN [Suspect]
     Indication: DRY MOUTH
     Dosage: 5 MG, TID
     Route: 048
     Dates: start: 20090701, end: 20090708
  2. CEVIMELINE HYDROCHLORIDE [Suspect]
     Indication: DRY MOUTH
     Dosage: 60 MG
     Route: 048
     Dates: start: 20090612, end: 20090617
  3. CEVIMELINE HYDROCHLORIDE [Suspect]
     Dosage: 90 MG
     Route: 048
     Dates: start: 20090618, end: 20090701
  4. ZOLOFT [Suspect]
     Dosage: UNK
     Route: 048
     Dates: start: 20090612, end: 20090811
  5. LEXOTAN [Concomitant]
     Indication: DEPRESSION
     Dosage: 15 MG
     Route: 048
  6. MYSLEE [Concomitant]
     Indication: DEPRESSION
     Dosage: 10 MG
     Route: 048
  7. ROHYPNOL [Concomitant]
     Indication: DEPRESSION
     Dosage: 2 MG
     Route: 048
     Dates: start: 20090608
  8. SEROQUEL [Concomitant]
     Indication: DEPRESSION
     Dosage: 100 MG
     Route: 048
     Dates: start: 20090610
  9. MUCOSTA [Concomitant]
     Indication: GASTRITIS
     Dosage: 300 MG
     Route: 048
     Dates: start: 20090624
  10. MAGNESIUM OXIDE [Concomitant]
     Indication: CONSTIPATION
     Dosage: 2.01 GM

REACTIONS (2)
  - AKATHISIA [None]
  - DYSKINESIA [None]
